FAERS Safety Report 25381081 (Version 1)
Quarter: 2025Q2

REPORT INFORMATION
  Report Type: Spontaneous
  Country: PT (occurrence: PT)
  Receive Date: 20250530
  Receipt Date: 20250530
  Transmission Date: 20250716
  Serious: Yes (Other)
  Sender: GILEAD
  Company Number: PT-GILEAD-2025-0714645

PATIENT
  Age: 38 Year
  Sex: Female

DRUGS (4)
  1. TRODELVY [Suspect]
     Active Substance: SACITUZUMAB GOVITECAN-HZIY
     Indication: Triple negative breast cancer
     Dosage: UNK UNK, Q3WK
     Route: 065
  2. TRODELVY [Suspect]
     Active Substance: SACITUZUMAB GOVITECAN-HZIY
     Indication: Metastases to central nervous system
  3. ZOLEDRONIC ACID [Concomitant]
     Active Substance: ZOLEDRONIC ACID
     Dosage: UNK, Q6WK
  4. TRASTUZUMAB DERUXTECAN [Concomitant]
     Active Substance: TRASTUZUMAB DERUXTECAN

REACTIONS (5)
  - Radiation leukoencephalopathy [Unknown]
  - Disease progression [Unknown]
  - Asthenia [Unknown]
  - Dysgeusia [Unknown]
  - Dizziness [Unknown]
